FAERS Safety Report 9768953 (Version 2)
Quarter: 2014Q4

REPORT INFORMATION
  Report Type: Report from Study
  Country: DE (occurrence: DE)
  Receive Date: 20131218
  Receipt Date: 20141112
  Transmission Date: 20150529
  Serious: Yes (Death, Other)
  Sender: FDA-Public Use
  Company Number: DE-ROCHE-1317511

PATIENT
  Age: 25 Year
  Sex: Male

DRUGS (3)
  1. ZELBORAF [Suspect]
     Active Substance: VEMURAFENIB
     Route: 065
     Dates: start: 201203
  2. FOTEMUSTINE [Concomitant]
     Active Substance: FOTEMUSTINE
     Indication: MALIGNANT MELANOMA
     Route: 065
     Dates: start: 201203
  3. ZELBORAF [Suspect]
     Active Substance: VEMURAFENIB
     Indication: MALIGNANT MELANOMA
     Route: 065
     Dates: start: 201108

REACTIONS (11)
  - Malignant neoplasm progression [Fatal]
  - Alopecia [Unknown]
  - Personality change [Unknown]
  - Diabetes mellitus inadequate control [Unknown]
  - Cognitive disorder [Unknown]
  - Fatigue [Unknown]
  - Cushing^s syndrome [Unknown]
  - Hepatotoxicity [Unknown]
  - Disturbance in attention [Unknown]
  - Amnesia [Unknown]
  - Acne [Unknown]

NARRATIVE: CASE EVENT DATE: 201201
